FAERS Safety Report 25900936 (Version 2)
Quarter: 2025Q4

REPORT INFORMATION
  Report Type: Spontaneous
  Country: US (occurrence: US)
  Receive Date: 20251009
  Receipt Date: 20251023
  Transmission Date: 20260117
  Serious: No
  Sender: LUPIN
  Company Number: US-LUPIN PHARMACEUTICALS INC.-2025-08989

PATIENT
  Age: 59 Year

DRUGS (5)
  1. TOLVAPTAN [Suspect]
     Active Substance: TOLVAPTAN
     Indication: Congenital cystic kidney disease
     Dosage: 45 MG, QD (IN MORNING)
  2. TOLVAPTAN [Suspect]
     Active Substance: TOLVAPTAN
     Indication: Congenital cystic kidney disease
     Dosage: 15 MG, QD (8 HOURS AFTER TAKING 45 MG)
  3. JYNARQUE [Concomitant]
     Active Substance: TOLVAPTAN
     Indication: Product used for unknown indication
     Dosage: UNK, 15 MG
     Route: 065
  4. JYNARQUE [Concomitant]
     Active Substance: TOLVAPTAN
     Dosage: UNK, 30 MG
     Route: 065
  5. JYNARQUE [Concomitant]
     Active Substance: TOLVAPTAN
     Dosage: UNK, 45 MG-15 MG TAB PAK
     Route: 065

REACTIONS (2)
  - Dry mouth [Unknown]
  - Product dose omission issue [Unknown]
